FAERS Safety Report 8535596-1 (Version None)
Quarter: 2012Q2

REPORT INFORMATION
  Report Type: 
  Country: None (occurrence: None)
  Receive Date: 20120412
  Receipt Date: 20090629
  Transmission Date: 20120825
  Serious: Yes (Other)
  Sender: FDA-Public Use
  Company Number: PHEH2009US06919

PATIENT
  Age: 51 Year
  Sex: Female

DRUGS (10)
  1. BENADRYL [Concomitant]
  2. LUPRON [Concomitant]
  3. ZOMETA [Suspect]
     Indication: BREAST CANCER STAGE IV
     Dosage: 4 MG, QMO
     Dates: start: 20021001
  4. NEULASTA [Concomitant]
  5. ZANTAC [Concomitant]
  6. ABRAXANE [Concomitant]
  7. AREDIA [Suspect]
     Indication: BREAST CANCER STAGE IV
     Dosage: 90 MG, QMO, INTRAVENOUS; 90 MG QMO
     Route: 042
     Dates: start: 20000401
  8. AREDIA [Suspect]
     Indication: BREAST CANCER STAGE IV
     Dosage: 90 MG, QMO, INTRAVENOUS; 90 MG QMO
     Route: 042
     Dates: start: 20071101, end: 20090601
  9. KYTRIL [Concomitant]
  10. AVASTIN [Concomitant]

REACTIONS (1)
  - OSTEONECROSIS [None]
